FAERS Safety Report 7061864-9 (Version None)
Quarter: 2010Q4

REPORT INFORMATION
  Report Type: 
  Country: None (occurrence: None)
  Receive Date: 20101026
  Receipt Date: 20101015
  Transmission Date: 20110411
  Serious: Yes (Hospitalization)
  Sender: FDA-Public Use
  Company Number: US-JNJFOC-20101004784

PATIENT
  Sex: Female

DRUGS (16)
  1. SIMPONI [Suspect]
     Indication: RHEUMATOID ARTHRITIS
     Route: 058
  2. LISINOPRIL [Concomitant]
     Indication: RENAL DISORDER
  3. DIOVAN HCT [Concomitant]
     Indication: RENAL DISORDER
  4. METFORMIN [Concomitant]
     Indication: DIABETES MELLITUS
  5. HUMALOG [Concomitant]
     Indication: DIABETES MELLITUS
  6. LANTUS [Concomitant]
     Indication: DIABETES MELLITUS
  7. CARDIAC MEDICATION UNSPECIFIED [Concomitant]
     Indication: SUPRAVENTRICULAR TACHYCARDIA
  8. DILTIAZEM CD [Concomitant]
  9. NEXIUM [Concomitant]
     Indication: GASTRIC DISORDER
  10. SUCRALFATE [Concomitant]
     Indication: GASTRIC DISORDER
  11. PERCOCET [Concomitant]
     Indication: ANXIETY
  12. PERCOCET [Concomitant]
     Indication: PAIN
  13. XANAX [Concomitant]
     Indication: ANXIETY
  14. XANAX [Concomitant]
     Indication: PAIN
  15. METHOTREXATE [Concomitant]
     Indication: RHEUMATOID ARTHRITIS
  16. FOLIC ACID [Concomitant]

REACTIONS (4)
  - FUNGAL SKIN INFECTION [None]
  - RHEUMATOID ARTHRITIS [None]
  - SYSTEMIC LUPUS ERYTHEMATOSUS [None]
  - URINARY TRACT INFECTION [None]
